FAERS Safety Report 21668746 (Version 22)
Quarter: 2025Q1

REPORT INFORMATION
  Report Type: Report from Study
  Country: US (occurrence: US)
  Receive Date: 20221201
  Receipt Date: 20250306
  Transmission Date: 20250409
  Serious: Yes (Hospitalization, Disabling, Other)
  Sender: AMGEN
  Company Number: US-HORIZON THERAPEUTICS-HZN-2021-004820

PATIENT
  Age: 53 Year
  Sex: Female
  Weight: 102 kg

DRUGS (106)
  1. TEPEZZA [Suspect]
     Active Substance: TEPROTUMUMAB-TRBW
     Indication: Hyperthyroidism
     Dosage: 1000 MILLIGRAM, Q3WK  (FIRST INFUSION)
     Route: 042
     Dates: start: 20210715
  2. TEPEZZA [Suspect]
     Active Substance: TEPROTUMUMAB-TRBW
     Indication: Endocrine ophthalmopathy
     Dosage: 1900 MILLIGRAM, Q3WK (SECOND INFUSION)
     Route: 042
     Dates: start: 20210805
  3. TEPEZZA [Suspect]
     Active Substance: TEPROTUMUMAB-TRBW
     Dosage: 1900 MILLIGRAM, Q3WK (THIRD INFUSION)
     Route: 042
     Dates: start: 20210826
  4. TEPEZZA [Suspect]
     Active Substance: TEPROTUMUMAB-TRBW
     Dosage: 1900 MILLIGRAM, Q3WK (FOURTH INFUSION)
     Route: 042
     Dates: start: 20210924
  5. TEPEZZA [Suspect]
     Active Substance: TEPROTUMUMAB-TRBW
     Dosage: 1900 MILLIGRAM, Q3WK (FIFTH INFUSION)
     Route: 042
     Dates: start: 20211015
  6. TEPEZZA [Suspect]
     Active Substance: TEPROTUMUMAB-TRBW
     Dosage: 1800 MILLIGRAM, Q3WK (SIXTH INFUSION)
     Route: 042
     Dates: start: 20211105
  7. TEPEZZA [Suspect]
     Active Substance: TEPROTUMUMAB-TRBW
     Dosage: 1800 MILLIGRAM, Q3WK (SEVENTH INFUSION)
     Route: 042
     Dates: start: 20211204
  8. TEPEZZA [Suspect]
     Active Substance: TEPROTUMUMAB-TRBW
     Dosage: 1800 MILLIGRAM, Q3WK (EIGHTH INFUSION)
     Route: 042
     Dates: start: 20211222, end: 20211222
  9. TEPEZZA [Suspect]
     Active Substance: TEPROTUMUMAB-TRBW
     Dosage: UNK UNK, Q3WK (FIRST INFUSION OF ANOTHER ROUND)
     Route: 042
     Dates: start: 2023
  10. TEPEZZA [Suspect]
     Active Substance: TEPROTUMUMAB-TRBW
     Dosage: UNK UNK, Q3WK (EIGHTH INFUSION OF ANOTHER ROUND)
     Route: 042
     Dates: start: 2023, end: 2023
  11. PREDNISONE [Suspect]
     Active Substance: PREDNISONE
     Indication: Product used for unknown indication
     Dosage: 20 MILLIGRAM, QD (3 TAB 2 DAYS/ 2 TAB 2 DAY/ 1 TAB 2 DAY)
     Route: 048
     Dates: start: 20190815, end: 20190901
  12. ARTIFICIAL TEAR [Concomitant]
     Active Substance: LANOLIN\MINERAL OIL\PETROLATUM
     Dosage: UNK, QID
     Route: 065
     Dates: start: 20190628
  13. BEPREVE [Concomitant]
     Active Substance: BEPOTASTINE BESILATE
     Indication: Pruritus
     Route: 065
     Dates: start: 20210114
  14. PAZEO [Concomitant]
     Active Substance: OLOPATADINE HYDROCHLORIDE
     Indication: Pruritus
     Route: 065
     Dates: start: 20210114
  15. BYSTOLIC [Concomitant]
     Active Substance: NEBIVOLOL HYDROCHLORIDE
     Dosage: 1 MILLIGRAM, QD
     Route: 048
     Dates: start: 20190511
  16. BYSTOLIC [Concomitant]
     Active Substance: NEBIVOLOL HYDROCHLORIDE
     Route: 048
  17. BYSTOLIC [Concomitant]
     Active Substance: NEBIVOLOL HYDROCHLORIDE
     Dosage: 5 MILLIGRAM, QD
     Route: 048
  18. COZAAR [Concomitant]
     Active Substance: LOSARTAN POTASSIUM
     Route: 048
     Dates: start: 20211109
  19. COZAAR [Concomitant]
     Active Substance: LOSARTAN POTASSIUM
     Dosage: 25 MILLIGRAM, QD
     Route: 048
  20. SYNTHROID [Concomitant]
     Active Substance: LEVOTHYROXINE SODIUM
     Indication: Post procedural hypothyroidism
     Dosage: 150 MICROGRAM, QD
     Route: 048
     Dates: start: 20190511
  21. SYNTHROID [Concomitant]
     Active Substance: LEVOTHYROXINE SODIUM
     Dosage: 112 MICROGRAM, QD (SIX TABLETS PER WEEK)
     Route: 048
     Dates: start: 20190511
  22. SYNTHROID [Concomitant]
     Active Substance: LEVOTHYROXINE SODIUM
     Dosage: 100 MICROGRAM, QD
     Route: 048
     Dates: start: 20230306, end: 20230316
  23. SYNTHROID [Concomitant]
     Active Substance: LEVOTHYROXINE SODIUM
     Dosage: 125 MICROGRAM, QD
     Route: 048
  24. SYNTHROID [Concomitant]
     Active Substance: LEVOTHYROXINE SODIUM
     Route: 048
     Dates: start: 20191122
  25. ERGOCALCIFEROL [Concomitant]
     Active Substance: ERGOCALCIFEROL
     Dosage: 1.25 MILLIGRAM, Q2WK
     Route: 048
     Dates: start: 20220209, end: 20230324
  26. IBUPROFEN [Concomitant]
     Active Substance: IBUPROFEN
     Dosage: 800 MILLIGRAM, TID WITH FOOD
     Route: 048
     Dates: start: 20240125
  27. RESTASIS [Concomitant]
     Active Substance: CYCLOSPORINE
     Dosage: 1 DROP, Q12H OPTHALMIC ROUTE
     Route: 047
  28. RESTASIS [Concomitant]
     Active Substance: CYCLOSPORINE
     Dosage: 1 DROP, BID, OU
     Route: 047
  29. LANSOPRAZOLE [Concomitant]
     Active Substance: LANSOPRAZOLE
     Dosage: 30 MILLIGRAM, QD BEFORE MEAL/MAY SUSBTITUTE
     Route: 048
  30. ONDANSETRON [Concomitant]
     Active Substance: ONDANSETRON
     Dosage: 4 MILLIGRAM, Q8H ON TOP OF THE TOUNGE WILL DISSOLVE THEN SWALLOW
     Route: 048
  31. OZEMPIC [Concomitant]
     Active Substance: SEMAGLUTIDE
     Indication: Abdominal pain upper
     Dosage: 0.5 MILLIGRAM, QWK
     Route: 058
     Dates: start: 20230210, end: 20230513
  32. BENZONATATE [Concomitant]
     Active Substance: BENZONATATE
     Indication: Cough
     Route: 065
  33. BENZONATATE [Concomitant]
     Active Substance: BENZONATATE
     Dosage: 200 MILLIGRAM, TID
     Route: 048
  34. MEDROL [Concomitant]
     Active Substance: METHYLPREDNISOLONE
     Route: 048
  35. ALBUTEROL SULFATE [Concomitant]
     Active Substance: ALBUTEROL SULFATE
     Dates: start: 20240219, end: 20240519
  36. QUESTRAN [Concomitant]
     Active Substance: CHOLESTYRAMINE
     Dosage: 4 GRAM, BID (TAKE 1 SCOOP)
     Route: 048
  37. PLENITY [Concomitant]
     Dosage: 0.75 GRAM, BID
     Route: 065
  38. AMBIEN [Concomitant]
     Active Substance: ZOLPIDEM TARTRATE
     Dosage: 5 MILLIGRAM, QD (TAKE 1 OR 2 TABLETS)
     Route: 048
     Dates: start: 20190401
  39. METHIMAZOLE [Concomitant]
     Active Substance: METHIMAZOLE
     Dosage: 10 MILLIGRAM, BID
     Route: 048
     Dates: start: 20190402
  40. METHIMAZOLE [Concomitant]
     Active Substance: METHIMAZOLE
     Route: 048
     Dates: start: 20190402
  41. REFRESH TEARS [Concomitant]
     Active Substance: CARBOXYMETHYLCELLULOSE SODIUM
     Route: 047
  42. SYSTANE (HYPROMELLOSE 2910 (4000 MPA.S)) [Concomitant]
     Active Substance: HYPROMELLOSE 2910 (4000 MPA.S)
     Route: 065
  43. HYDROCHLOROTHIAZIDE [Concomitant]
     Active Substance: HYDROCHLOROTHIAZIDE
     Route: 065
     Dates: start: 20190916
  44. HYDROCHLOROTHIAZIDE [Concomitant]
     Active Substance: HYDROCHLOROTHIAZIDE
  45. CALCIUM CARBONATE [Concomitant]
     Active Substance: CALCIUM CARBONATE
     Dosage: 500 MILLIGRAM, QD
     Route: 048
     Dates: start: 20190511
  46. NAPROXEN [Concomitant]
     Active Substance: NAPROXEN
     Indication: Pain
     Dosage: 1 MILLIGRAM, BID
     Route: 065
     Dates: start: 20190825
  47. NAPROXEN [Concomitant]
     Active Substance: NAPROXEN
  48. XANAX [Concomitant]
     Active Substance: ALPRAZOLAM
     Indication: Anxiety
     Dosage: 0.5 MILLIGRAM, TID
     Route: 048
     Dates: start: 20190823, end: 20190906
  49. CYCLOBENZAPRINE [Concomitant]
     Active Substance: CYCLOBENZAPRINE
     Dosage: 10 MILLIGRAM, QHS
     Route: 048
     Dates: start: 20190815, end: 20190901
  50. ACETAMINOPHEN [Concomitant]
     Active Substance: ACETAMINOPHEN
     Dosage: 500 MILLIGRAM, Q6H
     Route: 048
     Dates: start: 20190726, end: 20190815
  51. ROBAXIN [Concomitant]
     Active Substance: METHOCARBAMOL
     Dosage: 750 MILLIGRAM, BID
     Route: 048
     Dates: start: 20190726, end: 20190815
  52. LIDOCAINE [Concomitant]
     Active Substance: LIDOCAINE
     Dosage: UNK, QD
     Route: 061
     Dates: start: 20190726, end: 20190815
  53. PROPRANOLOL [Concomitant]
     Active Substance: PROPRANOLOL HYDROCHLORIDE
     Dosage: 20 MILLIGRAM, BID
     Route: 048
  54. OMNIPAQUE [Concomitant]
     Active Substance: IOHEXOL
     Route: 042
     Dates: start: 20190512
  55. GADAVIST [Concomitant]
     Active Substance: GADOBUTROL
     Route: 042
     Dates: start: 20200904
  56. ASPIRIN [Concomitant]
     Active Substance: ASPIRIN
     Route: 048
     Dates: start: 20190807
  57. VERSED [Concomitant]
     Active Substance: MIDAZOLAM HYDROCHLORIDE
     Route: 042
     Dates: start: 20190823
  58. PFIZER-BIONTECH COVID-19 VACCINE [Concomitant]
     Active Substance: TOZINAMERAN
     Route: 065
  59. VIVELLE-DOT [Concomitant]
     Active Substance: ESTRADIOL
     Route: 065
  60. BELVIQ [Concomitant]
     Active Substance: LORCASERIN HYDROCHLORIDE
     Route: 065
  61. PANTOPRAZOLE SODIUM [Concomitant]
     Active Substance: PANTOPRAZOLE SODIUM
     Route: 065
  62. PHENTERMINE [Concomitant]
     Active Substance: PHENTERMINE
     Dosage: 37.5 MILLIGRAM, QD
     Route: 065
  63. OXYCODONE AND ACETAMINOPHEN [Concomitant]
     Active Substance: ACETAMINOPHEN\OXYCODONE HYDROCHLORIDE
     Route: 065
  64. CHOLESTYRAMINE [Concomitant]
     Active Substance: CHOLESTYRAMINE
     Route: 065
  65. NYSTATIN AND TRIAMCINOLONE [Concomitant]
     Active Substance: NYSTATIN\TRIAMCINOLONE ACETONIDE
     Route: 065
  66. METHYLPREDNISOLONE [Concomitant]
     Active Substance: METHYLPREDNISOLONE
     Route: 065
  67. CYCLOBENZAPRINE [Concomitant]
     Active Substance: CYCLOBENZAPRINE
     Indication: Muscle spasms
     Route: 048
  68. CYCLOBENZAPRINE [Concomitant]
     Active Substance: CYCLOBENZAPRINE
     Route: 048
  69. VENTOLIN HFA [Concomitant]
     Active Substance: ALBUTEROL SULFATE
     Route: 065
  70. FLUTICASONE PROPIONATE [Concomitant]
     Active Substance: FLUTICASONE PROPIONATE
     Route: 065
  71. NORTRIPTYLINE HYDROCHLORIDE [Concomitant]
     Active Substance: NORTRIPTYLINE HYDROCHLORIDE
     Route: 065
  72. GABAPENTIN [Concomitant]
     Active Substance: GABAPENTIN
     Route: 065
  73. CIPROFLOXACIN HYDROCHLORIDE [Concomitant]
     Active Substance: CIPROFLOXACIN HYDROCHLORIDE
     Route: 065
  74. PHENAZOPYRIDINE [Concomitant]
     Active Substance: PHENAZOPYRIDINE
     Route: 065
  75. AZITHROMYCIN [Concomitant]
     Active Substance: AZITHROMYCIN
     Route: 065
  76. LORATADINE [Concomitant]
     Active Substance: LORATADINE
     Route: 065
  77. AMOXICILLIN [Concomitant]
     Active Substance: AMOXICILLIN
     Route: 065
  78. AMOXICILLIN [Concomitant]
     Active Substance: AMOXICILLIN
     Dosage: UNK (400 MILLIGRAM/5 MILLILITRE)
     Route: 048
  79. TRIAMCINOLONE [Concomitant]
     Active Substance: TRIAMCINOLONE
     Route: 065
  80. DICYCLOMINE [Concomitant]
     Active Substance: DICYCLOMINE HYDROCHLORIDE
     Route: 065
  81. ZOLPIDEM TARTRATE [Concomitant]
     Active Substance: ZOLPIDEM TARTRATE
     Route: 065
  82. VITAMIN D [Concomitant]
     Active Substance: VITAMIN D NOS
     Route: 048
  83. VITAMIN D [Concomitant]
     Active Substance: VITAMIN D NOS
     Dosage: 50000 UNIT, QWK
     Route: 048
  84. VENLAFAXINE HCL [Concomitant]
     Active Substance: VENLAFAXINE HYDROCHLORIDE
     Route: 065
  85. METHOCARBAMOL [Concomitant]
     Active Substance: METHOCARBAMOL
     Route: 065
  86. Sertraline hcl greenstone [Concomitant]
     Route: 065
  87. FAMOTIDINE [Concomitant]
     Active Substance: FAMOTIDINE
     Dosage: 40 MILLIGRAM, QD
     Route: 048
  88. FAMOTIDINE [Concomitant]
     Active Substance: FAMOTIDINE
  89. CEPHALEXIN [Concomitant]
     Active Substance: CEPHALEXIN
     Dosage: 500 MILLIGRAM, Q12H
     Route: 048
  90. DICLOFENAC SODIUM [Concomitant]
     Active Substance: DICLOFENAC SODIUM
     Route: 065
  91. LOSARTAN POTASSIUM [Concomitant]
     Active Substance: LOSARTAN POTASSIUM
     Dosage: 50 MILLIGRAM, QD
     Route: 048
     Dates: start: 20231113
  92. LOSARTAN POTASSIUM [Concomitant]
     Active Substance: LOSARTAN POTASSIUM
     Dosage: 25 MILLIGRAM, QD
     Route: 048
  93. CETIRIZINE HCL [Concomitant]
     Active Substance: CETIRIZINE HYDROCHLORIDE
     Route: 065
  94. TYRVAYA [Concomitant]
     Active Substance: VARENICLINE TARTRATE
     Dosage: UNK, BID (SPRAY INTO EACH NOSTRIL)
     Route: 045
  95. FLUZONE QUADRIVALENT NOS [Concomitant]
     Active Substance: INFLUENZA A VIRUS A/CALIFORNIA/7/2009 X-179A (H1N1) ANTIGEN (FORMALDEHYDE INACTIVATED)\INFLUENZA A V
     Route: 065
  96. MIRALAX [Concomitant]
     Active Substance: POLYETHYLENE GLYCOL 3350
     Indication: Constipation
     Route: 065
  97. ATIVAN [Concomitant]
     Active Substance: LORAZEPAM
     Dosage: 0.5 MILLIGRAM, QD 9TAKE ONE-HALF TO ONE TABLET)
     Route: 048
  98. SUPREP BOWEL PREP [Concomitant]
     Active Substance: MAGNESIUM SULFATE\POTASSIUM SULFATE\SODIUM SULFATE
     Route: 048
  99. FLONASE [Concomitant]
     Active Substance: FLUTICASONE PROPIONATE
     Route: 065
  100. BENADRYL [Concomitant]
     Active Substance: DIPHENHYDRAMINE HYDROCHLORIDE
     Route: 065
  101. METOCLOPRAMIDE [Concomitant]
     Active Substance: METOCLOPRAMIDE
     Dosage: 10 MILLIGRAM, BID
     Route: 048
  102. NEXIUM [Concomitant]
     Active Substance: ESOMEPRAZOLE MAGNESIUM
     Dosage: 40 MILLIGRAM, QD
     Route: 048
  103. LEXAPRO [Concomitant]
     Active Substance: ESCITALOPRAM OXALATE
     Dosage: 10 MILLIGRAM, QD
     Route: 048
  104. CIPRODEX [Concomitant]
     Active Substance: CIPROFLOXACIN HYDROCHLORIDE\DEXAMETHASONE
     Dosage: UNK UNK, BID (INSTILL 4 DROP)
     Route: 047
     Dates: end: 20200326
  105. LEVOTHYROXINE [Concomitant]
     Active Substance: LEVOTHYROXINE
     Route: 065
  106. VITAMIN D2 [Concomitant]
     Active Substance: ERGOCALCIFEROL

REACTIONS (78)
  - Physical disability [Unknown]
  - Disability [Unknown]
  - Deafness neurosensory [Unknown]
  - Headache [Unknown]
  - Chest pain [Unknown]
  - Back pain [Unknown]
  - Breast cyst [Unknown]
  - Neutrophil count decreased [Unknown]
  - Heart rate decreased [Unknown]
  - Blood creatine phosphokinase increased [Unknown]
  - Blood pressure diastolic increased [Unknown]
  - Lymphocyte count increased [Unknown]
  - Mean cell volume decreased [Unknown]
  - Mean cell haemoglobin decreased [Unknown]
  - Blood albumin decreased [Unknown]
  - Blood alkaline phosphatase increased [Unknown]
  - Aspartate aminotransferase decreased [Unknown]
  - Breast calcifications [Unknown]
  - Breast mass [Unknown]
  - Pancreatitis [Unknown]
  - Syncope [Recovering/Resolving]
  - Pain [Unknown]
  - Emotional distress [Unknown]
  - General physical health deterioration [Unknown]
  - Anxiety [Unknown]
  - Concomitant disease aggravated [Unknown]
  - Abdominal pain lower [Unknown]
  - Discomfort [Unknown]
  - Auditory disorder [Unknown]
  - Epistaxis [Unknown]
  - Weight increased [Unknown]
  - Influenza virus test positive [Unknown]
  - Off label use [Unknown]
  - Arthralgia [Unknown]
  - Vulval polyp [Unknown]
  - Hyperkeratosis [Unknown]
  - Neck pain [Unknown]
  - Essential hypertension [Unknown]
  - Neuralgia [Unknown]
  - Myalgia [Unknown]
  - Pain in extremity [Unknown]
  - Axillary pain [Unknown]
  - Perineal disorder [Unknown]
  - Blood pressure systolic increased [Unknown]
  - Eye pain [Unknown]
  - Thyroid stimulating immunoglobulin increased [Unknown]
  - Anti-thyroid antibody positive [Unknown]
  - Blood thyroid stimulating hormone increased [Unknown]
  - Blood thyroid stimulating hormone decreased [Unknown]
  - Dyspepsia [Unknown]
  - Nasal discharge discolouration [Unknown]
  - Nervousness [Unknown]
  - Sensation of foreign body [Unknown]
  - Abscess [Unknown]
  - Irritable bowel syndrome [Unknown]
  - Night sweats [Unknown]
  - Ligament sprain [Unknown]
  - Rotator cuff syndrome [Unknown]
  - Somnolence [Unknown]
  - Hepatic steatosis [Unknown]
  - Joint injury [Unknown]
  - Vertigo [Unknown]
  - Large intestine polyp [Unknown]
  - Palpitations [Recovering/Resolving]
  - Hyperlipidaemia [Unknown]
  - Upper respiratory tract infection [Unknown]
  - Ear discomfort [Unknown]
  - Tinnitus [Not Recovered/Not Resolved]
  - Muscle spasms [Unknown]
  - Nausea [Unknown]
  - Dry skin [Unknown]
  - Diarrhoea [Unknown]
  - Fatigue [Unknown]
  - Alopecia [Unknown]
  - Blood glucose increased [Unknown]
  - Productive cough [Unknown]
  - Intramammary lymph node [Unknown]
  - Respiratory tract congestion [Unknown]

NARRATIVE: CASE EVENT DATE: 20190823
